FAERS Safety Report 24311246 (Version 1)
Quarter: 2024Q3

REPORT INFORMATION
  Report Type: Spontaneous
  Country: EU (occurrence: EU)
  Receive Date: 20240912
  Receipt Date: 20240912
  Transmission Date: 20241017
  Serious: Yes (Other)
  Sender: BAUSCH AND LOMB
  Company Number: PT-BAUSCHBL-2024BNL032799

PATIENT
  Age: 67 Year
  Sex: Female

DRUGS (3)
  1. BRIMONIDINE TARTRATE [Suspect]
     Active Substance: BRIMONIDINE TARTRATE
     Indication: Ocular hypertension
     Route: 061
  2. TIMOLOL [Suspect]
     Active Substance: TIMOLOL
     Indication: Ocular hypertension
     Route: 061
  3. ACETAZOLAMIDE [Suspect]
     Active Substance: ACETAZOLAMIDE
     Indication: Ocular hypertension
     Route: 048

REACTIONS (3)
  - Venous stasis retinopathy [Recovered/Resolved]
  - Retinal vein occlusion [Recovered/Resolved]
  - Therapy non-responder [Unknown]
